FAERS Safety Report 6888001-5 (Version None)
Quarter: 2010Q3

REPORT INFORMATION
  Report Type: 
  Country: None (occurrence: None)
  Receive Date: 20100730
  Receipt Date: 20100726
  Transmission Date: 20110219
  Serious: Yes (Congenital Anomaly)
  Sender: FDA-Public Use
  Company Number: A0872557A

PATIENT
  Sex: Female
  Weight: 2.2 kg

DRUGS (8)
  1. COMBIVIR [Suspect]
     Indication: HIV INFECTION
     Dates: start: 20030529
  2. VIRACEPT [Suspect]
     Indication: HIV INFECTION
     Dates: start: 20030529, end: 20040405
  3. VIRAMUNE [Suspect]
     Indication: HIV INFECTION
     Dates: start: 20030529, end: 20030603
  4. FERROUS SULFATE [Concomitant]
  5. FEXOFENADINE [Concomitant]
  6. HYOSCINE HBR HYT [Concomitant]
  7. KETOPROFEN [Concomitant]
  8. METAMIZOLE [Concomitant]

REACTIONS (3)
  - DRUG EXPOSURE DURING PREGNANCY [None]
  - HIP DYSPLASIA [None]
  - PREMATURE BABY [None]
